FAERS Safety Report 9334625 (Version 3)
Quarter: 2013Q3

REPORT INFORMATION
  Report Type: Spontaneous
  Country: GB (occurrence: GB)
  Receive Date: 20130606
  Receipt Date: 20130922
  Transmission Date: 20140515
  Serious: Yes (Other)
  Sender: FDA-Public Use
  Company Number: GB-MYLANLABS-2013S1011584

PATIENT
  Age: 74 Year
  Sex: Male

DRUGS (2)
  1. DILTIAZEM [Suspect]
     Indication: ATRIAL FIBRILLATION
     Dates: start: 201304, end: 201305
  2. BISOPROLOL [Suspect]
     Indication: CARDIAC DISORDER
     Dates: start: 20130214

REACTIONS (3)
  - Cutaneous lupus erythematosus [Unknown]
  - Photosensitivity reaction [Unknown]
  - Somnolence [Unknown]
